FAERS Safety Report 9110685 (Version 1)
Quarter: 2013Q1

REPORT INFORMATION
  Report Type: Spontaneous
  Country: US (occurrence: US)
  Receive Date: 20130219
  Receipt Date: 20130219
  Transmission Date: 20140127
  Serious: No
  Sender: FDA-Public Use
  Company Number: US-BRISTOL-MYERS SQUIBB COMPANY-16858326

PATIENT
  Age: 54 Year
  Sex: Female

DRUGS (2)
  1. ORENCIA [Suspect]
     Indication: RHEUMATOID ARTHRITIS
     Dosage: FIRT SELF INJ ON 8AUG12?IV/SC
     Route: 042
     Dates: start: 20120807
  2. NAPROSYN [Concomitant]

REACTIONS (1)
  - Drug ineffective [Unknown]
